FAERS Safety Report 9687870 (Version 1)
Quarter: 2013Q4

REPORT INFORMATION
  Report Type: Spontaneous
  Country: GB (occurrence: None)
  Receive Date: 20131112
  Receipt Date: 20131112
  Transmission Date: 20140711
  Serious: Yes (Other)
  Sender: FDA-Public Use
  Company Number: AUR-APL-2013-09326

PATIENT
  Age: 40 Year
  Sex: Female

DRUGS (4)
  1. LEVETIRACETAM [Suspect]
     Indication: PRODUCT USED FOR UNKNOWN INDICATION
  2. LACOSAMIDE [Suspect]
  3. LAMOTRIGINE [Concomitant]
  4. TOPIRAMATE [Concomitant]

REACTIONS (2)
  - No therapeutic response [None]
  - Convulsion [None]
